FAERS Safety Report 7423844-0 (Version None)
Quarter: 2011Q2

REPORT INFORMATION
  Report Type: 
  Country: None (occurrence: None)
  Receive Date: 20110419
  Receipt Date: 20110414
  Transmission Date: 20111010
  Serious: Yes (Hospitalization, Other)
  Sender: FDA-Public Use
  Company Number: PHHO2010FR16017

PATIENT
  Sex: Male
  Weight: 85 kg

DRUGS (5)
  1. NEORAL [Suspect]
     Dosage: UNK
     Route: 048
     Dates: start: 20100914, end: 20101114
  2. PREDNISONE [Suspect]
  3. MYCOPHENOLIC ACID [Suspect]
     Indication: RENAL TRANSPLANT
     Dosage: 720 MG, BID
     Route: 048
     Dates: start: 20100812, end: 20101114
  4. PREDNISOLONE [Concomitant]
  5. NEORAL [Suspect]
     Indication: RENAL TRANSPLANT
     Dosage: 150 MG, BID
     Route: 048
     Dates: start: 20100813, end: 20100913

REACTIONS (5)
  - RENAL FAILURE ACUTE [None]
  - CYTOMEGALOVIRUS INFECTION [None]
  - HYDROCELE MALE INFECTED [None]
  - PYELONEPHRITIS ACUTE [None]
  - LYMPHOCELE [None]
